FAERS Safety Report 14287240 (Version 1)
Quarter: 2017Q4

REPORT INFORMATION
  Report Type: Spontaneous
  Country: US (occurrence: US)
  Receive Date: 20171214
  Receipt Date: 20171214
  Transmission Date: 20180321
  Serious: Yes (Other)
  Sender: FDA-Public Use
  Company Number: US-ASTELLAS-2017US041243

PATIENT
  Age: 70 Year
  Sex: Female

DRUGS (2)
  1. TARCEVA [Suspect]
     Active Substance: ERLOTINIB HYDROCHLORIDE
     Indication: LUNG NEOPLASM MALIGNANT
     Route: 048
     Dates: start: 201703, end: 201708
  2. TARCEVA [Suspect]
     Active Substance: ERLOTINIB HYDROCHLORIDE
     Route: 048
     Dates: start: 201708

REACTIONS (3)
  - Alopecia [Not Recovered/Not Resolved]
  - Hair growth abnormal [Unknown]
  - Rash generalised [Recovered/Resolved]

NARRATIVE: CASE EVENT DATE: 201704
